FAERS Safety Report 14947303 (Version 1)
Quarter: 2018Q2

REPORT INFORMATION
  Report Type: Spontaneous
  Country: DE (occurrence: DE)
  Receive Date: 20180529
  Receipt Date: 20180529
  Transmission Date: 20180711
  Serious: Yes (Hospitalization)
  Sender: FDA-Public Use
  Company Number: DE-PFIZER INC-2018209983

PATIENT
  Age: 72 Year
  Sex: Male

DRUGS (12)
  1. CARBOPLATIN. [Suspect]
     Active Substance: CARBOPLATIN
     Dosage: UNK
  2. PAMIDRONATE DISODIUM. [Suspect]
     Active Substance: PAMIDRONATE DISODIUM
     Dosage: UNK
  3. PANTOPRAZOL [Concomitant]
     Active Substance: PANTOPRAZOLE SODIUM
     Dosage: 40 MG, 2X/DAY
  4. OPIPRAMOL [Concomitant]
     Active Substance: OPIPRAMOL
     Dosage: 50 MG, 3X/DAY
  5. PHENPROCOUMON [Concomitant]
     Active Substance: PHENPROCOUMON
     Dosage: 3 MG, NACH INR
  6. PEMETREXED. [Suspect]
     Active Substance: PEMETREXED
     Dosage: UNK
  7. METAMIZOLE [Concomitant]
     Active Substance: METAMIZOLE
     Dosage: UNK UNK, AS NEEDED
  8. LAXOBERAL [Concomitant]
     Active Substance: SODIUM PICOSULFATE
     Dosage: UNK UNK, AS NEEDED
  9. AMLODIPINE [Concomitant]
     Active Substance: AMLODIPINE BESYLATE
     Dosage: 5 MG, 1X/DAY
  10. AMBROXOL [Concomitant]
     Active Substance: AMBROXOL
     Dosage: UNK UNK, AS NEEDED
  11. PASPERTIN [Concomitant]
     Dosage: UNK
  12. METOPROLOL. [Concomitant]
     Active Substance: METOPROLOL
     Dosage: 47.5 MG, 1-0-0-0

REACTIONS (3)
  - Hypokalaemia [Unknown]
  - Nausea [Unknown]
  - Dysphonia [Unknown]
